FAERS Safety Report 7720559-6 (Version None)
Quarter: 2011Q3

REPORT INFORMATION
  Report Type: 
  Country: None (occurrence: None)
  Receive Date: 20110831
  Receipt Date: 20110831
  Transmission Date: 20111222
  Serious: Yes (Disabling)
  Sender: FDA-Public Use
  Company Number: None

PATIENT
  Sex: Male
  Weight: 58.059 kg

DRUGS (2)
  1. CIPROFLOXACIN HCL [Suspect]
     Indication: GASTRIC DISORDER
     Dosage: 250 MG TAB
     Dates: start: 20110620, end: 20110704
  2. CIPROFLOXACIN HCL [Suspect]
     Indication: OVERGROWTH BACTERIAL
     Dosage: 250 MG TAB
     Dates: start: 20110620, end: 20110704

REACTIONS (4)
  - TENDON RUPTURE [None]
  - JOINT SWELLING [None]
  - WEIGHT BEARING DIFFICULTY [None]
  - SKIN DISCOLOURATION [None]
